FAERS Safety Report 11994211 (Version 1)
Quarter: 2016Q1

REPORT INFORMATION
  Report Type: Spontaneous
  Country: US (occurrence: US)
  Receive Date: 20160203
  Receipt Date: 20160203
  Transmission Date: 20160526
  Serious: No
  Sender: FDA-Public Use
  Company Number: US-UCBSA-2015028750

PATIENT

DRUGS (4)
  1. KEPPRA [Suspect]
     Active Substance: LEVETIRACETAM
     Indication: GENERALISED TONIC-CLONIC SEIZURE
     Dosage: FOR 10 YEARS
  2. PROZAC [Suspect]
     Active Substance: FLUOXETINE HYDROCHLORIDE
     Indication: PANIC ATTACK
     Dosage: UNK
  3. VALIUM [Suspect]
     Active Substance: DIAZEPAM
     Indication: PANIC ATTACK
     Dosage: UNK
  4. TOPAMAX [Suspect]
     Active Substance: TOPIRAMATE
     Indication: GENERALISED TONIC-CLONIC SEIZURE
     Dosage: FOR 10 YEARS

REACTIONS (3)
  - Panic attack [Unknown]
  - Depression [Unknown]
  - Adverse drug reaction [Unknown]
